FAERS Safety Report 8399473-1 (Version None)
Quarter: 2012Q2

REPORT INFORMATION
  Report Type: 
  Country: None (occurrence: None)
  Receive Date: 20120531
  Receipt Date: 20120521
  Transmission Date: 20120825
  Serious: Yes (Other)
  Sender: FDA-Public Use
  Company Number: GB-ALLERGAN-1202364US

PATIENT
  Age: 86 Year

DRUGS (3)
  1. XALATAN [Suspect]
     Indication: GLAUCOMA
     Dosage: UNK
     Route: 031
     Dates: start: 20110111, end: 20110212
  2. LUMIGAN [Suspect]
     Indication: GLAUCOMA
     Route: 047
  3. TAMSULOSIN HCL [Concomitant]
     Dosage: 400 A?G, BID

REACTIONS (3)
  - AGITATION [None]
  - MOOD ALTERED [None]
  - ANXIETY [None]
